FAERS Safety Report 17901424 (Version 1)
Quarter: 2020Q2

REPORT INFORMATION
  Report Type: Spontaneous
  Country: US (occurrence: US)
  Receive Date: 20200616
  Receipt Date: 20200616
  Transmission Date: 20200714
  Serious: No
  Sender: FDA-Public Use
  Company Number: US-ASTELLAS-2019US052132

PATIENT
  Age: 76 Year
  Sex: Female

DRUGS (1)
  1. VESICARE [Suspect]
     Active Substance: SOLIFENACIN SUCCINATE
     Indication: PRODUCT USED FOR UNKNOWN INDICATION
     Route: 065

REACTIONS (8)
  - Fungal infection [Unknown]
  - Treatment noncompliance [Unknown]
  - Constipation [Unknown]
  - Impaired quality of life [Unknown]
  - Eye pain [Unknown]
  - Dizziness [Unknown]
  - Urinary tract infection [Unknown]
  - Dry mouth [Unknown]
